FAERS Safety Report 8169539-X (Version None)
Quarter: 2012Q1

REPORT INFORMATION
  Report Type: 
  Country: None (occurrence: None)
  Receive Date: 20120228
  Receipt Date: 20120216
  Transmission Date: 20120608
  Serious: Yes (Other)
  Sender: FDA-Public Use
  Company Number: US-BAYER-2011-070653

PATIENT
  Sex: Female
  Weight: 65.76 kg

DRUGS (8)
  1. WELLBUTRIN [Concomitant]
     Indication: DEPRESSION
     Dosage: UNK
     Dates: start: 20050101, end: 20060101
  2. AMBIEN [Concomitant]
     Indication: SLEEP DISORDER
     Dosage: 5 MG AT NIGHT
     Route: 048
     Dates: start: 20060501
  3. SINGULAIR [Concomitant]
     Indication: MULTIPLE ALLERGIES
     Dosage: 10 MG, UNK
     Route: 048
     Dates: start: 20060501
  4. WELLBUTRIN XL [Concomitant]
     Dosage: 300 MG, QD
     Route: 048
  5. XOPENEX [Concomitant]
     Dosage: METERED DOSE 2 PUFFS EVERY 6 HOURS AS NEEDED
     Route: 055
     Dates: start: 20060501
  6. YASMIN [Suspect]
     Dosage: UNK
     Route: 048
     Dates: start: 20040101, end: 20080101
  7. ACIPHEX [Concomitant]
     Indication: GASTROOESOPHAGEAL REFLUX DISEASE
     Dosage: 20 MG, BID
     Dates: start: 20040101, end: 20090101
  8. ZOLOFT [Concomitant]
     Indication: DEPRESSION

REACTIONS (5)
  - GALLBLADDER INJURY [None]
  - FEAR [None]
  - INJURY [None]
  - CHOLECYSTITIS CHRONIC [None]
  - PAIN [None]
